FAERS Safety Report 6325371-0 (Version None)
Quarter: 2009Q3

REPORT INFORMATION
  Report Type: 
  Country: None (occurrence: None)
  Receive Date: 20090824
  Receipt Date: 20090721
  Transmission Date: 20100115
  Serious: No
  Sender: FDA-Public Use
  Company Number: US-ABBOTT-09P-163-0586621-00

PATIENT
  Sex: Male
  Weight: 90.8 kg

DRUGS (5)
  1. NIASPAN [Suspect]
     Indication: HIGH DENSITY LIPOPROTEIN DECREASED
     Dates: start: 20090701
  2. NIASPAN [Suspect]
  3. BLOOD PRESSURE MEDICATION [Concomitant]
     Indication: DRUG USE FOR UNKNOWN INDICATION
  4. DIABETES MEDICATION [Concomitant]
     Indication: DRUG USE FOR UNKNOWN INDICATION
  5. VITAMIN D [Concomitant]
     Indication: DRUG USE FOR UNKNOWN INDICATION

REACTIONS (1)
  - FLUSHING [None]
